APPROVED DRUG PRODUCT: LIOTHYRONINE SODIUM
Active Ingredient: LIOTHYRONINE SODIUM
Strength: EQ 0.05MG BASE
Dosage Form/Route: TABLET;ORAL
Application: A214803 | Product #003 | TE Code: AB
Applicant: ZYDUS LIFESCIENCES GLOBAL FZE
Approved: Jan 22, 2021 | RLD: No | RS: No | Type: RX